FAERS Safety Report 23581276 (Version 6)
Quarter: 2025Q4

REPORT INFORMATION
  Report Type: Spontaneous
  Country: CA (occurrence: CA)
  Receive Date: 20240229
  Receipt Date: 20251217
  Transmission Date: 20260118
  Serious: Yes (Death, Hospitalization, Other)
  Sender: PURDUE
  Company Number: CA-HEALTHCANVIG-E2B_06410273

PATIENT
  Age: 82 Year
  Sex: Female

DRUGS (10)
  1. MORPHINE SULFATE [Suspect]
     Active Substance: MORPHINE SULFATE
     Indication: Pain
     Dosage: UNK
     Route: 065
  2. CLOPIDOGREL [Suspect]
     Active Substance: CLOPIDOGREL BISULFATE
     Indication: Product used for unknown indication
     Dosage: UNK
     Route: 065
  3. AMBRISENTAN [Suspect]
     Active Substance: AMBRISENTAN
     Indication: Pulmonary arterial hypertension
     Dosage: 5 MILLIGRAM, DAILY(1 EVERY 1 DAYS)
     Route: 048
  4. AMBRISENTAN [Suspect]
     Active Substance: AMBRISENTAN
     Dosage: 10 MILLIGRAM, 1 EVERY 1 DAYS
     Route: 048
  5. ERELZI [Suspect]
     Active Substance: ETANERCEPT-SZZS
     Indication: Rheumatoid arthritis
     Dosage: 50 MILLIGRAM, 1 EVERY 1 WEEKS
     Route: 058
  6. HYDROMORPHONE HYDROCHLORIDE [Concomitant]
     Active Substance: HYDROMORPHONE HYDROCHLORIDE
     Indication: Product used for unknown indication
     Dosage: UNK
     Route: 065
  7. LYRICA [Concomitant]
     Active Substance: PREGABALIN
     Indication: Product used for unknown indication
     Dosage: UNK
     Route: 065
  8. DESOXIMETASONE [Concomitant]
     Active Substance: DESOXIMETASONE
     Indication: Product used for unknown indication
     Dosage: UNK
     Route: 065
  9. DESOXIMETASONE [Concomitant]
     Active Substance: DESOXIMETASONE
     Dosage: UNK
     Route: 065
  10. DESOXIMETASONE [Concomitant]
     Active Substance: DESOXIMETASONE
     Dosage: 1 EVERY 12 HOURS
     Route: 065

REACTIONS (35)
  - Angioplasty [Fatal]
  - Gastric haemorrhage [Fatal]
  - Insomnia [Fatal]
  - Malaise [Fatal]
  - Nausea [Fatal]
  - Pain [Fatal]
  - Toe amputation [Fatal]
  - Drug ineffective [Fatal]
  - Suture removal [Fatal]
  - Pain in extremity [Fatal]
  - Pneumonia [Fatal]
  - Infection [Fatal]
  - Abdominal pain [Fatal]
  - Arthralgia [Fatal]
  - Arthritis [Fatal]
  - Back pain [Fatal]
  - COVID-19 [Fatal]
  - Ear pain [Fatal]
  - Eating disorder [Fatal]
  - Facial pain [Fatal]
  - Frequent bowel movements [Fatal]
  - General physical health deterioration [Fatal]
  - Injection site bruising [Fatal]
  - Nasal discharge discolouration [Fatal]
  - Pain assessment [Fatal]
  - Pain in jaw [Fatal]
  - Psoriasis [Fatal]
  - Sinusitis [Fatal]
  - Syncope [Fatal]
  - Toothache [Fatal]
  - Visual impairment [Fatal]
  - Vomiting [Fatal]
  - Wrong technique in product usage process [Fatal]
  - Death [Fatal]
  - Hospitalisation [Fatal]
